FAERS Safety Report 8142077-6 (Version None)
Quarter: 2012Q1

REPORT INFORMATION
  Report Type: 
  Country: None (occurrence: None)
  Receive Date: 20120103
  Receipt Date: 20111009
  Transmission Date: 20120608
  Serious: No
  Sender: FDA-Public Use
  Company Number: AE-2011-001482

PATIENT
  Age: 60 Year
  Sex: Male

DRUGS (7)
  1. PEGASYS [Concomitant]
  2. INCIVEK [Suspect]
     Dosage: 2250 MG (750 MG,3 IN 1 D), ORAL
     Route: 048
     Dates: start: 20110908
  3. NADOLOL [Concomitant]
  4. OMEPRAZOLE [Concomitant]
  5. RIBAVIRIN [Concomitant]
  6. ROPINIROLE [Concomitant]
  7. NABUMETONE [Concomitant]

REACTIONS (2)
  - RASH MACULAR [None]
  - PRURITUS [None]
